FAERS Safety Report 7704724-X (Version None)
Quarter: 2011Q3

REPORT INFORMATION
  Report Type: 
  Country: None (occurrence: None)
  Receive Date: 20110823
  Receipt Date: 20110815
  Transmission Date: 20111222
  Serious: Yes (Hospitalization)
  Sender: FDA-Public Use
  Company Number: PHHY2011IT74251

PATIENT
  Age: 53 Year
  Sex: Male

DRUGS (1)
  1. HYDROCHLOROTHIAZIDE [Suspect]
     Indication: HYPERTENSION
     Dosage: 25 MG, UNK
     Dates: end: 20060601

REACTIONS (3)
  - RETINAL OEDEMA [None]
  - VISION BLURRED [None]
  - METAMORPHOPSIA [None]
